FAERS Safety Report 8201406-5 (Version None)
Quarter: 2012Q1

REPORT INFORMATION
  Report Type: 
  Country: None (occurrence: None)
  Receive Date: 20120229
  Receipt Date: 20110117
  Transmission Date: 20120608
  Serious: Yes (Death)
  Sender: FDA-Public Use
  Company Number: DKLU1067863

PATIENT
  Age: 32 Year
  Sex: Male

DRUGS (1)
  1. DESOXYN [Suspect]
     Indication: PRODUCT USED FOR UNKNOWN INDICATION
     Dosage: ORAL
     Route: 048

REACTIONS (1)
  - INTENTIONAL DRUG MISUSE [None]
